FAERS Safety Report 25959673 (Version 1)
Quarter: 2025Q4

REPORT INFORMATION
  Report Type: Spontaneous
  Country: US (occurrence: US)
  Receive Date: 20251026
  Receipt Date: 20251026
  Transmission Date: 20260117
  Serious: Yes (Other)
  Sender: SANOFI AVENTIS
  Company Number: US-SA-2025SA313184

PATIENT
  Age: 67 Year
  Sex: Female

DRUGS (35)
  1. DUPIXENT [Suspect]
     Active Substance: DUPILUMAB
     Indication: Obstructive sleep apnoea syndrome
     Dosage: 300 MG, QOW
     Route: 058
  2. DUPIXENT [Suspect]
     Active Substance: DUPILUMAB
     Indication: Chronic obstructive pulmonary disease
  3. ALBUTEROL SULFATE [Concomitant]
     Active Substance: ALBUTEROL SULFATE
  4. BREZTRI AEROSPHERE [BUDESONIDE;FORMOTEROL FUMARATE DIHYDRATE;GLYCOPYRR [Concomitant]
     Dosage: 160-9-4
  5. BUSPIRONE [Concomitant]
     Active Substance: BUSPIRONE HYDROCHLORIDE
  6. EZETIMIBE [Concomitant]
     Active Substance: EZETIMIBE
  7. FERROUS [FERROUS SULFATE] [Concomitant]
  8. FLUOXETINE [Concomitant]
     Active Substance: FLUOXETINE HYDROCHLORIDE
  9. FLUTICASONE [Concomitant]
     Active Substance: FLUTICASONE
  10. FOLIC ACID [Concomitant]
     Active Substance: FOLIC ACID
  11. FUROSEMIDE [Concomitant]
     Active Substance: FUROSEMIDE
     Dosage: 20 MG
  12. FUROSEMIDE [Concomitant]
     Active Substance: FUROSEMIDE
     Dosage: 20 MG
  13. FUROSEMIDE [Concomitant]
     Active Substance: FUROSEMIDE
     Dosage: 40 MG
  14. GABAPENTIN [Concomitant]
     Active Substance: GABAPENTIN
  15. IPRATROPIUM [Concomitant]
     Active Substance: IPRATROPIUM
     Dosage: 0.5-2.5
  16. LISINOPRIL [Concomitant]
     Active Substance: LISINOPRIL
  17. METHOCARBAMOL [Concomitant]
     Active Substance: METHOCARBAMOL
  18. MIRABEGRON [Concomitant]
     Active Substance: MIRABEGRON
  19. MONTELUKAST [Concomitant]
     Active Substance: MONTELUKAST
  20. OXYCODONE [Concomitant]
     Active Substance: OXYCODONE
  21. PANTOPRAZOLE [Concomitant]
     Active Substance: PANTOPRAZOLE
  22. ROSUVASTATIN [Concomitant]
     Active Substance: ROSUVASTATIN
  23. SENNOSIDES [Concomitant]
     Active Substance: SENNOSIDES
  24. SOLIFENACIN [Concomitant]
     Active Substance: SOLIFENACIN
  25. SPIRONOLACTONE [Concomitant]
     Active Substance: SPIRONOLACTONE
  26. TRAZODONE [Concomitant]
     Active Substance: TRAZODONE HYDROCHLORIDE
  27. VITAMIN B12 [Concomitant]
     Active Substance: CYANOCOBALAMIN
  28. VITAMIN D;VITAMIN E [Concomitant]
  29. AZITHROMYCIN [Concomitant]
     Active Substance: AZITHROMYCIN
  30. EPINEPHRINE [Concomitant]
     Active Substance: EPINEPHRINE
  31. LORAZEPAM [Concomitant]
     Active Substance: LORAZEPAM
  32. METOPROLOL [Concomitant]
     Active Substance: METOPROLOL
  33. NITROFURANTOIN [Concomitant]
     Active Substance: NITROFURANTOIN
     Dosage: 50MG/10M
  34. TAMSULOSIN [Concomitant]
     Active Substance: TAMSULOSIN
  35. PREDNISONE [Concomitant]
     Active Substance: PREDNISONE

REACTIONS (8)
  - Lung neoplasm malignant [Recovered/Resolved]
  - Paraplegia [Unknown]
  - Spinal operation [Unknown]
  - Pleural effusion [Unknown]
  - Escherichia infection [Unknown]
  - Insomnia [Not Recovered/Not Resolved]
  - Urinary tract infection [Unknown]
  - Product use in unapproved indication [Unknown]

NARRATIVE: CASE EVENT DATE: 20250402
